FAERS Safety Report 8003944-7 (Version None)
Quarter: 2011Q4

REPORT INFORMATION
  Report Type: 
  Country: None (occurrence: None)
  Receive Date: 20111222
  Receipt Date: 20111219
  Transmission Date: 20120403
  Serious: Yes (Death, Hospitalization)
  Sender: FDA-Public Use
  Company Number: US-CELGENEUS-163-21880-11091039

PATIENT
  Sex: Male

DRUGS (4)
  1. REVLIMID [Suspect]
     Dosage: 10 MILLIGRAM
     Route: 048
     Dates: start: 20091216, end: 20110901
  2. REVLIMID [Suspect]
     Dosage: 10 MILLIGRAM
     Route: 048
     Dates: start: 20081215
  3. DEXAMETHASONE [Concomitant]
     Route: 065
  4. FLUDROCORTISONE ACETATE [Concomitant]
     Route: 065

REACTIONS (3)
  - DEATH [None]
  - RENAL FAILURE [None]
  - MULTIPLE MYELOMA [None]
